FAERS Safety Report 11719120 (Version 1)
Quarter: 2015Q4

REPORT INFORMATION
  Report Type: Report from Study
  Country: US (occurrence: US)
  Receive Date: 20151110
  Receipt Date: 20151110
  Transmission Date: 20160304
  Serious: No
  Sender: FDA-Public Use
  Company Number: US-VANDA PHARMACEUTICALS, INC-2015TASUS000892

PATIENT
  Sex: Female
  Weight: 58.96 kg

DRUGS (1)
  1. HETLIOZ [Suspect]
     Active Substance: TASIMELTEON
     Indication: INSOMNIA
     Dosage: DAILY AT NIGHTS
     Route: 048
     Dates: end: 2015

REACTIONS (2)
  - Drug ineffective for unapproved indication [Unknown]
  - Incorrect drug administration duration [Unknown]
